FAERS Safety Report 5087717-3 (Version None)
Quarter: 2006Q3

REPORT INFORMATION
  Report Type: 
  Country: None (occurrence: None)
  Receive Date: 20060821
  Receipt Date: 20060810
  Transmission Date: 20061208
  Serious: Yes (Hospitalization)
  Sender: FDA-Public Use
  Company Number: MEDI-0004826

PATIENT
  Age: 71 Year
  Sex: Male
  Weight: 102.0593 kg

DRUGS (15)
  1. ETHYOL [Suspect]
     Indication: RADIOTHERAPY
     Dosage: 500 MG, 5 IN 5 D, SUBCUTANEOUS
     Route: 058
     Dates: start: 20060627, end: 20060707
  2. RADIATION THERAPY [Concomitant]
  3. ERBITUX [Concomitant]
  4. CISPLATIN [Concomitant]
  5. FLUOROURACIL [Concomitant]
  6. PHENERGAN [Concomitant]
  7. ATIVAN [Concomitant]
  8. FLONASE NASAL SPRAY (FLUTICASONE PROPIONATE) [Concomitant]
  9. ZOFRAN [Concomitant]
  10. COMPAZINE [Concomitant]
  11. GENTEAL GEL OINTMENT (HYPROMELLOSE) [Concomitant]
  12. STANNOUS FLUORIDE [Concomitant]
  13. ARANESP [Concomitant]
  14. BENADRYL [Concomitant]
  15. PNEUMOVAX 23 [Concomitant]

REACTIONS (17)
  - ANAEMIA [None]
  - DEHYDRATION [None]
  - DUODENAL ULCER [None]
  - DYSPHAGIA [None]
  - INJECTION SITE HAEMORRHAGE [None]
  - ISCHAEMIC ULCER [None]
  - LETHARGY [None]
  - MALLORY-WEISS SYNDROME [None]
  - MUCOSAL INFLAMMATION [None]
  - NAUSEA [None]
  - PYREXIA [None]
  - RASH MACULO-PAPULAR [None]
  - RASH PRURITIC [None]
  - RETCHING [None]
  - UPPER GASTROINTESTINAL HAEMORRHAGE [None]
  - VOMITING [None]
  - WEIGHT DECREASED [None]
